FAERS Safety Report 6845462-5 (Version None)
Quarter: 2010Q3

REPORT INFORMATION
  Report Type: 
  Country: None (occurrence: None)
  Receive Date: 20100715
  Receipt Date: 20070827
  Transmission Date: 20110219
  Serious: No
  Sender: FDA-Public Use
  Company Number: US-PFIZER INC-2007069757

PATIENT
  Sex: Female
  Weight: 59.1 kg

DRUGS (5)
  1. CHANTIX [Suspect]
     Indication: SMOKING CESSATION THERAPY
     Dates: start: 20070801
  2. CYMBALTA [Concomitant]
     Indication: DEPRESSION
  3. XANAX [Concomitant]
     Indication: AGITATION
  4. TRAZODONE HYDROCHLORIDE [Concomitant]
  5. WELLBUTRIN [Concomitant]

REACTIONS (7)
  - ABNORMAL DREAMS [None]
  - DIARRHOEA [None]
  - FATIGUE [None]
  - INSOMNIA [None]
  - OEDEMA PERIPHERAL [None]
  - URINARY INCONTINENCE [None]
  - URINARY RETENTION [None]
